FAERS Safety Report 12192329 (Version 2)
Quarter: 2016Q2

REPORT INFORMATION
  Report Type: Spontaneous
  Country: IN (occurrence: IN)
  Receive Date: 20160318
  Receipt Date: 20160411
  Transmission Date: 20160815
  Serious: Yes (Other)
  Sender: FDA-Public Use
  Company Number: IN-IMPAX LABORATORIES, INC-2016-IPXL-00286

PATIENT
  Age: 65 Year
  Sex: Female
  Weight: 43 kg

DRUGS (2)
  1. PHENYTOIN CHEWABLE [Suspect]
     Active Substance: PHENYTOIN
     Dosage: 100 MG IN 500 ML OF NORMAL SALINE OVER 8 HRS
     Route: 042
  2. PHENYTOIN CHEWABLE [Suspect]
     Active Substance: PHENYTOIN
     Indication: GENERALISED TONIC-CLONIC SEIZURE
     Dosage: 600 MG OF DISSOLVED IN 100 ML OF NORMAL SALINE THROUGH A 22G CANNULA
     Route: 042

REACTIONS (2)
  - Purple glove syndrome [Recovered/Resolved]
  - Gangrene [Recovered/Resolved]
